FAERS Safety Report 9188907 (Version 1)
Quarter: 2013Q1

REPORT INFORMATION
  Report Type: Spontaneous
  Country: US (occurrence: US)
  Receive Date: 20130326
  Receipt Date: 20130326
  Transmission Date: 20140127
  Serious: Yes (Other)
  Sender: FDA-Public Use
  Company Number: US-AMGEN-USASP2013019683

PATIENT
  Age: 28 Year
  Sex: Female
  Weight: 68.03 kg

DRUGS (17)
  1. ENBREL [Suspect]
     Indication: PRODUCT USED FOR UNKNOWN INDICATION
     Dosage: 50 MG, QWK
     Route: 058
  2. AMBIEN [Concomitant]
     Dosage: 10 MG, UNK
  3. ZOLOFT [Concomitant]
     Dosage: 25 MG, UNK
  4. MELOXICAM [Concomitant]
     Dosage: 15 MG, UNK
  5. METHOTREXATE [Concomitant]
     Dosage: 2.5 MG, UNK
  6. PREDNISONE [Concomitant]
     Dosage: 5 MG, UNK
  7. LORATADINE [Concomitant]
     Dosage: 10 MG, UNK
  8. OMEPRAZOLE [Concomitant]
     Dosage: 20 MG, UNK
  9. ACYCLOVIR                          /00587301/ [Concomitant]
     Dosage: 400 MG, UNK
  10. IBUPROFEN [Concomitant]
     Dosage: 400 MG, UNK
  11. DOCUSATE SOD [Concomitant]
     Dosage: 100 MG, UNK
  12. NEXIUM                             /01479302/ [Concomitant]
     Dosage: 40 MG, UNK
  13. SUDOGEST [Concomitant]
     Dosage: 30 MG, UNK
  14. MULTIVITAMINS, PLAIN [Concomitant]
     Dosage: UNK
  15. PERCOCET                           /00867901/ [Concomitant]
     Dosage: 5-325 MG
  16. FLEXERIL                           /00428402/ [Concomitant]
     Dosage: 5 MG, UNK
  17. TRAZODONE [Concomitant]
     Dosage: 100 MG, UNK

REACTIONS (3)
  - Oral disorder [Unknown]
  - Local swelling [Unknown]
  - Sinusitis [Unknown]
